FAERS Safety Report 5699247-6 (Version None)
Quarter: 2008Q2

REPORT INFORMATION
  Report Type: 
  Country: None (occurrence: None)
  Receive Date: 20080407
  Receipt Date: 20080407
  Transmission Date: 20081010
  Serious: No
  Sender: FDA-Public Use
  Company Number: None

PATIENT
  Age: 31 Year
  Sex: Male
  Weight: 109.3169 kg

DRUGS (2)
  1. ZICAM COLD REMEDY NASAL SPRAY MATRIXX INITIATIVES INC [Suspect]
     Indication: NASAL CONGESTION
     Dosage: 1 SPRAY, EACH NOSTRIL EVERY 4-5 HOURS
     Route: 045
     Dates: start: 20080124, end: 20080131
  2. ZICAM COLD REMEDY NASAL SPRAY MATRIXX INITIATIVES INC [Suspect]
     Indication: NASOPHARYNGITIS
     Dosage: 1 SPRAY, EACH NOSTRIL EVERY 4-5 HOURS
     Route: 045
     Dates: start: 20080124, end: 20080131

REACTIONS (5)
  - AGEUSIA [None]
  - ANOSMIA [None]
  - DECREASED APPETITE [None]
  - NASAL DISCOMFORT [None]
  - WEIGHT DECREASED [None]
